FAERS Safety Report 9186741 (Version 3)
Quarter: 2013Q2

REPORT INFORMATION
  Report Type: Spontaneous
  Country: JP (occurrence: JP)
  Receive Date: 20130325
  Receipt Date: 20130405
  Transmission Date: 20140414
  Serious: Yes (Other)
  Sender: FDA-Public Use
  Company Number: JP-GENZYME-CERZ-1002807

PATIENT
  Age: 40 Year
  Sex: Female
  Weight: 47 kg

DRUGS (2)
  1. CEREZYME [Suspect]
     Indication: GAUCHER^S DISEASE
     Dosage: UNK
     Route: 042
  2. CEREZYME [Suspect]
     Dosage: 59.5 U/KG, Q3W
     Route: 042

REACTIONS (2)
  - Abortion spontaneous [Unknown]
  - Maternal exposure during pregnancy [Unknown]
